FAERS Safety Report 7743151-6 (Version None)
Quarter: 2011Q3

REPORT INFORMATION
  Report Type: 
  Country: None (occurrence: None)
  Receive Date: 20110908
  Receipt Date: 20110908
  Transmission Date: 20111222
  Serious: Yes (Life-Threatening, Hospitalization, Disabling, Other)
  Sender: FDA-Public Use
  Company Number: None

PATIENT
  Age: 92 Year
  Sex: Female
  Weight: 47.6277 kg

DRUGS (1)
  1. CEFDINIR [Suspect]
     Indication: EAR INFECTION
     Dosage: 300MG CAP (16 PILLS) 2X DAY MOUTH
     Route: 048
     Dates: start: 20100601

REACTIONS (12)
  - DIARRHOEA [None]
  - GASTROINTESTINAL DISORDER [None]
  - ASTHENIA [None]
  - CLOSTRIDIAL INFECTION [None]
  - ACTIVITIES OF DAILY LIVING IMPAIRED [None]
  - ELECTROLYTE IMBALANCE [None]
  - MALAISE [None]
  - WALKING AID USER [None]
  - ARRHYTHMIA [None]
  - BEDRIDDEN [None]
  - BODY TEMPERATURE INCREASED [None]
  - BALANCE DISORDER [None]
